FAERS Safety Report 10121390 (Version 1)
Quarter: 2014Q2

REPORT INFORMATION
  Report Type: Spontaneous
  Country: US (occurrence: US)
  Receive Date: 20140427
  Receipt Date: 20140427
  Transmission Date: 20141212
  Serious: No
  Sender: FDA-Public Use
  Company Number: US-009507513-1404USA012003

PATIENT
  Sex: Female

DRUGS (5)
  1. FOSAMAX PLUS D [Suspect]
     Indication: OSTEOPOROSIS
     Dosage: 70 MG/5600IU, QW, START DATE: 2010 OR 2011
     Route: 048
     Dates: start: 2010, end: 2013
  2. ABILIFY [Concomitant]
  3. AMOXAPINE [Concomitant]
  4. CYMBALTA [Concomitant]
  5. ZYPREXA [Concomitant]

REACTIONS (3)
  - Osteoporosis [Recovering/Resolving]
  - Wrist fracture [Recovering/Resolving]
  - Drug ineffective [Recovering/Resolving]
